FAERS Safety Report 19956602 (Version 1)
Quarter: 2021Q4

REPORT INFORMATION
  Report Type: Spontaneous
  Country: CN (occurrence: CN)
  Receive Date: 20211014
  Receipt Date: 20211014
  Transmission Date: 20220303
  Serious: No
  Sender: FDA-Public Use
  Company Number: CN-BAXTER-2021BAX029010

PATIENT
  Age: 44 Year
  Sex: Female
  Weight: 65 kg

DRUGS (12)
  1. CYCLOPHOSPHAMIDE [Suspect]
     Active Substance: CYCLOPHOSPHAMIDE
     Indication: Thyroid cancer recurrent
     Dosage: 1ST COURSE
     Route: 041
     Dates: start: 202101
  2. CYCLOPHOSPHAMIDE [Suspect]
     Active Substance: CYCLOPHOSPHAMIDE
     Dosage: 2-4 COURSE OF CHEMOTHERAPY
     Route: 041
  3. CYCLOPHOSPHAMIDE [Suspect]
     Active Substance: CYCLOPHOSPHAMIDE
     Dosage: CYCLOPHOSPHAMIDE POWDER FOR INJECTION 0.75G + 0.9% SODIUM CHLORIDE INJECTION 100ML
     Route: 041
     Dates: start: 20210502, end: 20210502
  4. SODIUM CHLORIDE [Suspect]
     Active Substance: SODIUM CHLORIDE
     Indication: Medication dilution
     Dosage: CYCLOPHOSPHAMIDE FOR INJECTION 0.75G + 0.9% SODIUM CHLORIDE INJECTION 100ML
     Route: 041
     Dates: start: 20210502, end: 20210502
  5. DEXTROSE [Suspect]
     Active Substance: DEXTROSE
     Indication: Medication dilution
     Dosage: PACLITAXEL LIPOSOME 270MG + 5% GLUCOSE INJECTION 250ML
     Route: 041
     Dates: start: 20210502, end: 20210502
  6. DEXTROSE [Suspect]
     Active Substance: DEXTROSE
     Dosage: PIRARUBICIN HYDROCHLORIDE 75 MG FOR INJECTION + 5% GLUCOSE INJECTION 250ML
     Route: 041
     Dates: start: 20210502, end: 20210502
  7. PACLITAXEL [Suspect]
     Active Substance: PACLITAXEL
     Indication: Thyroid cancer recurrent
     Dosage: 1ST CHEMOTHERAPY
     Route: 041
     Dates: start: 202101
  8. PACLITAXEL [Suspect]
     Active Substance: PACLITAXEL
     Dosage: 2-4 COURSES OF CHEMOTHERAPY
     Route: 041
  9. PACLITAXEL [Suspect]
     Active Substance: PACLITAXEL
     Dosage: PACLITAXEL LIPOSOME INJECTION 75MG + 5% GLUCOSE INJECTION 250ML; 5TH COURSE
     Route: 041
     Dates: start: 20210502, end: 20210502
  10. PIRARUBICIN HYDROCHLORIDE [Suspect]
     Active Substance: PIRARUBICIN HYDROCHLORIDE
     Indication: Thyroid cancer recurrent
     Dosage: 1ST CHEMOTHERAPY
     Route: 041
     Dates: start: 202101
  11. PIRARUBICIN HYDROCHLORIDE [Suspect]
     Active Substance: PIRARUBICIN HYDROCHLORIDE
     Dosage: 2-4 COURSES OF CHEMOTHERAPY
     Route: 041
  12. PIRARUBICIN HYDROCHLORIDE [Suspect]
     Active Substance: PIRARUBICIN HYDROCHLORIDE
     Dosage: PIRARUBICIN HYDROCHLORIDE INJECTION 75MG + 5% GLUCOSE INJECTION 250ML; 5TH COURSE
     Route: 041
     Dates: start: 20210502, end: 20210502

REACTIONS (1)
  - Hepatitis [Recovering/Resolving]

NARRATIVE: CASE EVENT DATE: 20210522
